FAERS Safety Report 14732295 (Version 1)
Quarter: 2018Q2

REPORT INFORMATION
  Report Type: Spontaneous
  Country: US (occurrence: US)
  Receive Date: 20180409
  Receipt Date: 20180409
  Transmission Date: 20180711
  Serious: No
  Sender: FDA-Public Use
  Company Number: US-TEVA-767128ACC

PATIENT
  Sex: Female

DRUGS (11)
  1. L-GLUTAMINE [Concomitant]
  2. COQ10 [Concomitant]
     Active Substance: UBIDECARENONE
  3. NAC [Concomitant]
  4. ACETYL-L-CARNITINE [Concomitant]
  5. IBANDRONATE SODIUM. [Suspect]
     Active Substance: IBANDRONATE SODIUM
     Indication: OSTEOPOROSIS
     Dates: start: 20170401
  6. TURMERIC [Concomitant]
     Active Substance: HERBALS\TURMERIC
  7. CINNAMON. [Concomitant]
     Active Substance: CINNAMON
  8. VITAMIN D3 [Concomitant]
     Active Substance: CHOLECALCIFEROL
  9. VITAMIN B12 [Concomitant]
     Active Substance: CYANOCOBALAMIN
  10. VISION FORMULA [Concomitant]
  11. LECITHIN [Concomitant]
     Active Substance: LECITHIN

REACTIONS (4)
  - Abdominal pain upper [Not Recovered/Not Resolved]
  - Vomiting [Not Recovered/Not Resolved]
  - Diarrhoea [Not Recovered/Not Resolved]
  - Nausea [Recovered/Resolved]

NARRATIVE: CASE EVENT DATE: 20170401
